FAERS Safety Report 7513074-6 (Version None)
Quarter: 2011Q2

REPORT INFORMATION
  Report Type: 
  Country: None (occurrence: None)
  Receive Date: 20110531
  Receipt Date: 20110524
  Transmission Date: 20111010
  Serious: Yes (Hospitalization)
  Sender: FDA-Public Use
  Company Number: DE-BRISTOL-MYERS SQUIBB COMPANY-15773492

PATIENT
  Age: 67 Year
  Sex: Male
  Weight: 68 kg

DRUGS (2)
  1. CISPLATIN [Suspect]
     Indication: NON-SMALL CELL LUNG CANCER
     Dosage: LAST DOSE:18APR11
     Route: 042
     Dates: start: 20110418
  2. GEMCITABINE HCL [Suspect]
     Indication: NON-SMALL CELL LUNG CANCER
     Dosage: LAST DOSE:27APR11
     Route: 042
     Dates: start: 20110418

REACTIONS (1)
  - DYSPNOEA [None]
